FAERS Safety Report 4361365-2 (Version None)
Quarter: 2004Q2

REPORT INFORMATION
  Report Type: 
  Country: None (occurrence: None)
  Receive Date: 20040519
  Receipt Date: 20040519
  Transmission Date: 20050107
  Serious: Yes (Life-Threatening, Hospitalization)
  Sender: FDA-Public Use
  Company Number: None

PATIENT
  Age: 50 Year
  Sex: Male
  Weight: 99.7913 kg

DRUGS (1)
  1. CRESTOR [Suspect]
     Indication: HYPERLIPIDAEMIA
     Dosage: 10 MG ONCE A DA ORAL
     Route: 048
     Dates: start: 20031201, end: 20040123

REACTIONS (3)
  - ANXIETY [None]
  - CHEST PAIN [None]
  - HYPERTENSION [None]
